FAERS Safety Report 5817245-6 (Version None)
Quarter: 2008Q3

REPORT INFORMATION
  Report Type: 
  Country: None (occurrence: None)
  Receive Date: 20080722
  Receipt Date: 20080721
  Transmission Date: 20090109
  Serious: Yes (Other)
  Sender: FDA-Public Use
  Company Number: A0738602A

PATIENT
  Age: 28 Year
  Sex: Female

DRUGS (2)
  1. ALLI [Suspect]
     Indication: DRUG USE FOR UNKNOWN INDICATION
     Route: 048
  2. OVER COUNTER MEDICINES [Concomitant]

REACTIONS (2)
  - INSOMNIA [None]
  - MYOCARDIAL INFARCTION [None]
